FAERS Safety Report 4927014-7 (Version None)
Quarter: 2006Q1

REPORT INFORMATION
  Report Type: 
  Country: None (occurrence: None)
  Receive Date: 20060228
  Receipt Date: 20051004
  Transmission Date: 20060701
  Serious: No
  Sender: FDA-Public Use
  Company Number: US-GLAXOSMITHKLINE-A0576992A

PATIENT
  Age: 55 Year
  Sex: Male

DRUGS (4)
  1. LAMICTAL [Suspect]
     Indication: EPILEPSY
     Route: 048
     Dates: start: 20050421
  2. PHENYTOIN [Concomitant]
  3. PHENOBARBITAL TAB [Concomitant]
  4. LORAZEPAM [Concomitant]

REACTIONS (1)
  - ANTICONVULSANT DRUG LEVEL BELOW THERAPEUTIC [None]
